FAERS Safety Report 9030818 (Version 1)
Quarter: 2013Q1

REPORT INFORMATION
  Report Type: Spontaneous
  Country: US (occurrence: US)
  Receive Date: 20130123
  Receipt Date: 20130123
  Transmission Date: 20140127
  Serious: Yes (Hospitalization, Disabling)
  Sender: FDA-Public Use
  Company Number: US-COVIDIEN/TYCO HEALTHCARE/MALLINCKRODT-T201300075

PATIENT
  Age: 31 Year
  Sex: Male

DRUGS (1)
  1. OPTIMARK [Suspect]
     Indication: NUCLEAR MAGNETIC RESONANCE IMAGING BRAIN
     Dosage: 20 ML, SINGLE

REACTIONS (6)
  - Nephrogenic systemic fibrosis [Not Recovered/Not Resolved]
  - Syncope [Unknown]
  - Pain [Unknown]
  - Headache [Unknown]
  - Pain in extremity [Unknown]
  - Local swelling [Unknown]
